FAERS Safety Report 7091318-5 (Version None)
Quarter: 2010Q4

REPORT INFORMATION
  Report Type: 
  Country: None (occurrence: None)
  Receive Date: 20101105
  Receipt Date: 20101105
  Transmission Date: 20110411
  Serious: Yes (Hospitalization)
  Sender: FDA-Public Use
  Company Number: None

PATIENT
  Age: 71 Year
  Sex: Female

DRUGS (2)
  1. CLINDAMYCIN [Suspect]
     Indication: CELLULITIS
     Dosage: PO
     Route: 048
  2. CEPHALEXIN [Suspect]
     Dosage: PO
     Route: 048

REACTIONS (1)
  - LEUKOCYTOCLASTIC VASCULITIS [None]
